FAERS Safety Report 4964286-7 (Version None)
Quarter: 2006Q2

REPORT INFORMATION
  Report Type: 
  Country: None (occurrence: None)
  Receive Date: 20060406
  Receipt Date: 20060308
  Transmission Date: 20061013
  Serious: Yes (Hospitalization)
  Sender: FDA-Public Use
  Company Number: PHMT2006CA00834

PATIENT
  Age: 61 Year
  Sex: Male

DRUGS (10)
  1. OLANZAPINE [Suspect]
     Dosage: 5 MG, QHS
  2. DANTROLENE [Concomitant]
  3. BROMOCRIPTINE MESYLATE [Concomitant]
  4. METOPROLOL SUCCINATE [Concomitant]
     Dosage: 25 MG, BID
  5. METOPROLOL SUCCINATE [Concomitant]
     Dosage: 50 MG, BID
  6. WARFARIN [Concomitant]
     Dosage: 5 MG QD 3 DAYS/WK - 7.5 MG QD 4 DAYS/WK
  7. LITHIUM [Suspect]
     Dosage: 300 MG AM - 750 MG PM/DAY
  8. VALPROIC ACID [Suspect]
     Dosage: 500 MG AM - 750 MG PM/DAY
  9. ASPIRIN [Concomitant]
     Dosage: 80 MG, QD
  10. CLOZAPINE [Suspect]
     Indication: BIPOLAR DISORDER
     Dosage: 125 MG, QHS

REACTIONS (26)
  - BLOOD CHLORIDE INCREASED [None]
  - BLOOD CREATINE INCREASED [None]
  - BLOOD LACTATE DEHYDROGENASE INCREASED [None]
  - BLOOD POTASSIUM DECREASED [None]
  - BLOOD PRESSURE INCREASED [None]
  - BLOOD SODIUM INCREASED [None]
  - BLOOD UREA INCREASED [None]
  - CONFUSIONAL STATE [None]
  - DEPRESSED LEVEL OF CONSCIOUSNESS [None]
  - DIABETES INSIPIDUS [None]
  - DIFFICULTY IN WALKING [None]
  - DIZZINESS [None]
  - FATIGUE [None]
  - GENERAL PHYSICAL HEALTH DETERIORATION [None]
  - HYPERTHERMIA [None]
  - INTUBATION [None]
  - NEUROLEPTIC MALIGNANT SYNDROME [None]
  - NEUTROPHIL COUNT INCREASED [None]
  - ORTHOSTATIC HYPOTENSION [None]
  - PROTEUS INFECTION [None]
  - PYREXIA [None]
  - RESPIRATORY TRACT INFECTION [None]
  - SPUTUM ABNORMAL [None]
  - TACHYCARDIA [None]
  - TACHYPNOEA [None]
  - WHITE BLOOD CELL COUNT INCREASED [None]
